FAERS Safety Report 12194356 (Version 2)
Quarter: 2016Q2

REPORT INFORMATION
  Report Type: Spontaneous
  Country: JP (occurrence: JP)
  Receive Date: 20160321
  Receipt Date: 20160401
  Transmission Date: 20160815
  Serious: Yes (Hospitalization, Disabling)
  Sender: FDA-Public Use
  Company Number: JP-AMGEN-JPNSP2016034714

PATIENT
  Age: 84 Year
  Sex: Female

DRUGS (2)
  1. RANMARK [Suspect]
     Active Substance: DENOSUMAB
     Indication: PLASMA CELL MYELOMA
     Dosage: 120 MG, Q4WK
     Route: 058
  2. DENOTAS [Concomitant]
     Active Substance: CALCIUM CARBONATE\CHOLECALCIFEROL\MAGNESIUM CARBONATE
     Dosage: 2 DF, QD
     Route: 065

REACTIONS (1)
  - Osteonecrosis of jaw [Not Recovered/Not Resolved]

NARRATIVE: CASE EVENT DATE: 201602
